FAERS Safety Report 24661188 (Version 1)
Quarter: 2024Q4

REPORT INFORMATION
  Report Type: Spontaneous
  Country: US (occurrence: US)
  Receive Date: 20241125
  Receipt Date: 20241125
  Transmission Date: 20250115
  Serious: No
  Sender: AVADEL CNS PHARMACEUTICALS, LLC
  Company Number: US-AVADEL CNS PHARMACEUTICALS, LLC-2024AVA01570

PATIENT
  Sex: Female
  Weight: 80.272 kg

DRUGS (26)
  1. LUMRYZ [Suspect]
     Active Substance: SODIUM OXYBATE
     Indication: Narcolepsy
     Dosage: 4.5 G, ONCE NIGHTLY AT BEDTIME ON AN EMPTY STOMACH
     Route: 048
     Dates: start: 20240814, end: 2024
  2. LUMRYZ [Suspect]
     Active Substance: SODIUM OXYBATE
     Indication: Cataplexy
     Dosage: 4.5 G, ONCE NIGHTLY AT BEDTIME ON AN EMPTY STOMACH
     Route: 048
     Dates: start: 2024, end: 2024
  3. LUMRYZ [Suspect]
     Active Substance: SODIUM OXYBATE
     Indication: Narcolepsy
     Dosage: 6 G, ONCE NIGHTLY AT BEDTIME ON AN EMPTY STOMACH
     Route: 048
     Dates: start: 2024, end: 2024
  4. LUMRYZ [Suspect]
     Active Substance: SODIUM OXYBATE
     Indication: Cataplexy
     Dosage: 6 G, ONCE NIGHTLY AT BEDTIME ON AN EMPTY STOMACH
     Route: 048
     Dates: start: 2024
  5. LUMRYZ [Suspect]
     Active Substance: SODIUM OXYBATE
     Indication: Narcolepsy
     Dosage: 7.5 G, ONCE NIGHTLY AT BEDTIME ON AN EMPTY STOMACH
     Route: 048
     Dates: start: 2024, end: 2024
  6. LUMRYZ [Suspect]
     Active Substance: SODIUM OXYBATE
     Indication: Cataplexy
  7. LUMRYZ [Suspect]
     Active Substance: SODIUM OXYBATE
     Indication: Narcolepsy
     Dosage: 9 G, ONCE NIGHTLY AT BEDTIME ON AN EMPTY STOMACH
     Route: 048
     Dates: start: 2024, end: 2024
  8. LUMRYZ [Suspect]
     Active Substance: SODIUM OXYBATE
     Indication: Cataplexy
  9. FLUOXETINE HYDROCHLORIDE [Concomitant]
     Active Substance: FLUOXETINE HYDROCHLORIDE
  10. MAGNESIUM [Concomitant]
     Active Substance: MAGNESIUM
  11. COENZYME Q10 [Concomitant]
     Active Substance: DIETARY SUPPLEMENT\UBIDECARENONE
     Dosage: 100
  12. UBRELVY [Concomitant]
     Active Substance: UBROGEPANT
  13. VITAMIN D2 [Concomitant]
     Active Substance: ERGOCALCIFEROL
  14. ONDANSETRON HYDROCHLORIDE [Concomitant]
     Active Substance: ONDANSETRON HYDROCHLORIDE
  15. RIBOFLAVIN [Concomitant]
     Active Substance: RIBOFLAVIN
  16. PROPRANOLOL HYDROCHLORIDE [Concomitant]
     Active Substance: PROPRANOLOL HYDROCHLORIDE
  17. PEPCID [Concomitant]
     Active Substance: FAMOTIDINE
     Dosage: UNK
  18. PEPCID [Concomitant]
     Active Substance: FAMOTIDINE
     Dosage: UNK, AS NEEDED
  19. KLONOPIN [Concomitant]
     Active Substance: CLONAZEPAM
  20. QULIPTA [Concomitant]
     Active Substance: ATOGEPANT
  21. VOQUEZNA [Concomitant]
     Active Substance: VONOPRAZAN FUMARATE
     Dosage: UNK, AS NEEDED
  22. BUSPIRONE HCL [Concomitant]
     Active Substance: BUSPIRONE HYDROCHLORIDE
  23. SUNOSI [Concomitant]
     Active Substance: SOLRIAMFETOL
     Dosage: 150 MG
     Dates: end: 2024
  24. SUNOSI [Concomitant]
     Active Substance: SOLRIAMFETOL
     Dosage: 75 MG
     Dates: start: 2024
  25. LO LOESTRIN FE [Concomitant]
     Active Substance: ETHINYL ESTRADIOL\NORETHINDRONE ACETATE
     Dosage: 1 MG-10?G
  26. TYLENOL [Concomitant]
     Active Substance: ACETAMINOPHEN

REACTIONS (19)
  - Sleep disorder [Not Recovered/Not Resolved]
  - Terminal insomnia [Not Recovered/Not Resolved]
  - Brain fog [Unknown]
  - Cognitive disorder [Unknown]
  - COVID-19 [Recovering/Resolving]
  - Pyrexia [Recovering/Resolving]
  - Cough [Recovering/Resolving]
  - Oropharyngeal pain [Recovering/Resolving]
  - Chills [Recovering/Resolving]
  - Nasal congestion [Recovering/Resolving]
  - Rhinorrhoea [Recovering/Resolving]
  - Lethargy [Recovering/Resolving]
  - Pain of skin [Recovering/Resolving]
  - Anxiety [Unknown]
  - Depression [Unknown]
  - Dizziness [Unknown]
  - Hyperhidrosis [Recovering/Resolving]
  - Decreased appetite [Recovering/Resolving]
  - Unevaluable event [Unknown]

NARRATIVE: CASE EVENT DATE: 20240101
